FAERS Safety Report 8377291-8 (Version None)
Quarter: 2012Q2

REPORT INFORMATION
  Report Type: 
  Country: None (occurrence: None)
  Receive Date: 20120522
  Receipt Date: 20120514
  Transmission Date: 20120825
  Serious: Yes (Other)
  Sender: FDA-Public Use
  Company Number: CA-UCBSA-047024

PATIENT
  Age: 51 Year
  Sex: Female
  Weight: 56.616 kg

DRUGS (17)
  1. VITAMIN B-12 [Concomitant]
     Indication: VITAMIN SUPPLEMENTATION
     Dosage: DOSE UNKNOWN
  2. CYMBALTA [Concomitant]
     Indication: RHEUMATOID ARTHRITIS
     Route: 048
     Dates: start: 20120401
  3. METHOTREXATE [Concomitant]
     Indication: RHEUMATOID ARTHRITIS
     Route: 058
  4. TYLENOL [Concomitant]
     Indication: RHEUMATOID ARTHRITIS
     Dosage: 1 - 2 TABLETS
     Route: 048
     Dates: start: 20070101
  5. OXYCODONE HCL [Concomitant]
     Indication: RHEUMATOID ARTHRITIS
     Dosage: 15-30 MG EVERY DAY AT BEDTIME
     Route: 048
     Dates: start: 20110101
  6. FOLIC ACID [Concomitant]
     Indication: VITAMIN SUPPLEMENTATION
     Route: 048
     Dates: start: 20070101
  7. VALTREX [Concomitant]
     Indication: ANTIVIRAL TREATMENT
     Route: 048
     Dates: start: 20070101
  8. PERIOT [Concomitant]
     Dosage: DOSE INCREASED
  9. CIMZIA [Suspect]
     Route: 058
     Dates: start: 20110615, end: 20110713
  10. AMITRIPTYLINE HCL [Concomitant]
     Indication: ANTIDEPRESSANT THERAPY
     Dosage: DOSE UNKNOWN,NO OF INTAKES-QHS.
     Route: 048
  11. PERIOT [Concomitant]
     Dosage: DOSE UNKNOWN
  12. ARTHROTEC [Suspect]
     Indication: PAIN
  13. NEW ANTIDEPRESSANT [Concomitant]
     Indication: DEPRESSION
     Route: 048
     Dates: start: 20110101
  14. IRON [Concomitant]
     Indication: MINERAL SUPPLEMENTATION
     Dosage: DOSE UNKNOWN
  15. CIMZIA [Suspect]
     Indication: RHEUMATOID ARTHRITIS
     Route: 058
     Dates: start: 20110727
  16. VALTREX [Concomitant]
     Indication: RHEUMATOID ARTHRITIS
     Route: 048
     Dates: start: 20070101
  17. TYLENOL [Concomitant]
     Indication: PAIN
     Dosage: 1 - 2 TABLETS
     Route: 048
     Dates: start: 20070101

REACTIONS (5)
  - GASTROINTESTINAL HAEMORRHAGE [None]
  - INFLUENZA [None]
  - RHEUMATOID ARTHRITIS [None]
  - DEPRESSED MOOD [None]
  - ANAEMIA [None]
